FAERS Safety Report 7843363-7 (Version None)
Quarter: 2011Q4

REPORT INFORMATION
  Report Type: 
  Country: None (occurrence: None)
  Receive Date: 20111025
  Receipt Date: 20111021
  Transmission Date: 20120403
  Serious: Yes (Other)
  Sender: FDA-Public Use
  Company Number: FR-ROCHE-792116

PATIENT
  Sex: Female

DRUGS (4)
  1. ROCEPHIN [Suspect]
     Indication: SEPTIC SHOCK
     Dosage: FREQ: FOR 13 DAYS.
     Route: 065
  2. LEVOFLOXACIN [Suspect]
     Indication: SEPTIC SHOCK
     Dosage: FREQ: 500MGX2 FOR 6DAYS, THEN 500MGX1 FOR 2 DAYS.
     Route: 065
  3. AUGMENTIN [Suspect]
     Indication: SEPTIC SHOCK
     Dosage: FREQ: FOR 2 DAYS.
     Route: 065
  4. GENTAMICIN [Suspect]
     Indication: SEPTIC SHOCK
     Dosage: REQ: FOR 2 DAYS.
     Route: 065

REACTIONS (1)
  - DEAFNESS UNILATERAL [None]
